FAERS Safety Report 22097241 (Version 14)
Quarter: 2024Q4

REPORT INFORMATION
  Report Type: Spontaneous
  Country: CA (occurrence: CA)
  Receive Date: 20230315
  Receipt Date: 20241226
  Transmission Date: 20250114
  Serious: Yes (Other)
  Sender: CELLTRION
  Company Number: CA-CELLTRION INC.-2022CA008852

PATIENT

DRUGS (15)
  1. INFLECTRA [Suspect]
     Active Substance: INFLIXIMAB-DYYB
     Indication: Crohn^s disease
     Dosage: 800 MG (10 MG/KG ), EVERY 8 WEEKS FOR 12 MONTHS
     Route: 042
     Dates: start: 20220509
  2. INFLECTRA [Suspect]
     Active Substance: INFLIXIMAB-DYYB
     Dosage: 10 MG/KG (800 MG), EVERY 8 WEEKS FOR 12 MONTHS
     Route: 042
     Dates: start: 20220912
  3. INFLECTRA [Suspect]
     Active Substance: INFLIXIMAB-DYYB
     Dosage: 800 MG (10 MG/KG ), EVERY 8 WEEKS
     Route: 042
     Dates: start: 20221107
  4. INFLECTRA [Suspect]
     Active Substance: INFLIXIMAB-DYYB
     Dosage: 10 MG/KG (800 MG), EVERY 8 WEEKS
     Route: 042
     Dates: start: 20230111
  5. INFLECTRA [Suspect]
     Active Substance: INFLIXIMAB-DYYB
     Dosage: 10 MG/KG (800 MG), EVERY 8 WEEKS
     Route: 042
     Dates: start: 20230307
  6. INFLECTRA [Suspect]
     Active Substance: INFLIXIMAB-DYYB
     Dosage: 782 MG (10 MG/KG), EVERY 8 WEEKS
     Route: 042
     Dates: start: 20230502
  7. INFLECTRA [Suspect]
     Active Substance: INFLIXIMAB-DYYB
     Dosage: 782 MG, (10 MG/KG), EVERY 8 WEEKS
     Route: 042
     Dates: start: 20230502
  8. INFLECTRA [Suspect]
     Active Substance: INFLIXIMAB-DYYB
     Dosage: 10 MG/KG, EVERY 8 WEEKS
     Route: 042
     Dates: start: 20230630
  9. INFLECTRA [Suspect]
     Active Substance: INFLIXIMAB-DYYB
     Dosage: 10 MG/KG, EVERY 8 WEEKS
     Route: 042
     Dates: start: 20231024
  10. INFLECTRA [Suspect]
     Active Substance: INFLIXIMAB-DYYB
     Dosage: 10 MG/KG, EVERY 8 WEEKS
     Route: 042
     Dates: start: 20240221
  11. INFLECTRA [Suspect]
     Active Substance: INFLIXIMAB-DYYB
     Dosage: 10MG/KG (800 MG), EVERY 8 WEEKS
     Route: 042
     Dates: start: 20240502
  12. INFLECTRA [Suspect]
     Active Substance: INFLIXIMAB-DYYB
     Dosage: 10MG/KG (800 MG), EVERY 8 WEEKS
     Route: 042
     Dates: start: 20240502
  13. INFLECTRA [Suspect]
     Active Substance: INFLIXIMAB-DYYB
     Dosage: 10MG/KG (800 MG), EVERY 8 WEEKS
     Route: 042
     Dates: start: 20240627
  14. INFLECTRA [Suspect]
     Active Substance: INFLIXIMAB-DYYB
     Dosage: 800 MG (10 MG/KG), EVERY 8 WEEKS
     Route: 042
     Dates: start: 20240911
  15. INFLECTRA [Suspect]
     Active Substance: INFLIXIMAB-DYYB
     Dosage: 769 MG (10 MG/KG), 7 WEEKS AND 5 DAYS (EVERY 8 WEEKS)
     Route: 042
     Dates: start: 20241104

REACTIONS (15)
  - Skin cancer [Recovered/Resolved]
  - Malignant neoplasm of eyelid [Unknown]
  - Disease recurrence [Unknown]
  - Tendon disorder [Unknown]
  - Asthenia [Unknown]
  - Chills [Unknown]
  - COVID-19 [Unknown]
  - Influenza [Unknown]
  - Influenza like illness [Not Recovered/Not Resolved]
  - Oropharyngeal pain [Recovering/Resolving]
  - Pyrexia [Recovering/Resolving]
  - COVID-19 [Not Recovered/Not Resolved]
  - Condition aggravated [Not Recovered/Not Resolved]
  - Off label use [Unknown]
  - Intentional product use issue [Unknown]

NARRATIVE: CASE EVENT DATE: 20220618
